FAERS Safety Report 14879553 (Version 1)
Quarter: 2018Q2

REPORT INFORMATION
  Report Type: Report from Study
  Country: US (occurrence: US)
  Receive Date: 20180511
  Receipt Date: 20180511
  Transmission Date: 20180711
  Serious: No
  Sender: FDA-Public Use
  Company Number: US-ROCHE-2118733

PATIENT
  Sex: Female

DRUGS (1)
  1. OCREVUS [Suspect]
     Active Substance: OCRELIZUMAB
     Indication: RELAPSING MULTIPLE SCLEROSIS
     Dosage: 2ND DOSE (300MG) WAS RECEIVED 2 WEEKS LATER
     Route: 042
     Dates: start: 20171114

REACTIONS (5)
  - Nasopharyngitis [Recovered/Resolved]
  - Fatigue [Unknown]
  - Hypoaesthesia [Unknown]
  - Influenza [Recovered/Resolved]
  - Paraesthesia [Unknown]
